FAERS Safety Report 24885947 (Version 2)
Quarter: 2025Q1

REPORT INFORMATION
  Report Type: Report from Study
  Country: US (occurrence: US)
  Receive Date: 20250125
  Receipt Date: 20250310
  Transmission Date: 20250408
  Serious: Yes (Hospitalization)
  Sender: ABBVIE
  Company Number: US-ABBVIE-6100732

PATIENT
  Sex: Male

DRUGS (2)
  1. CREON [Suspect]
     Active Substance: PANCRELIPASE AMYLASE\PANCRELIPASE LIPASE\PANCRELIPASE PROTEASE
     Indication: Product used for unknown indication
     Route: 048
     Dates: start: 20241007
  2. XELODA [Concomitant]
     Active Substance: CAPECITABINE
     Indication: Neoplasm malignant

REACTIONS (4)
  - Gastrointestinal haemorrhage [Unknown]
  - Flatulence [Not Recovered/Not Resolved]
  - Abdominal distension [Not Recovered/Not Resolved]
  - Drug ineffective [Unknown]
